FAERS Safety Report 10415300 (Version 1)
Quarter: 2014Q3

REPORT INFORMATION
  Report Type: Spontaneous
  Country: US (occurrence: US)
  Receive Date: 20140828
  Receipt Date: 20140828
  Transmission Date: 20150326
  Serious: No
  Sender: FDA-Public Use
  Company Number: US-BAYER-2014-122600

PATIENT
  Age: 76 Year
  Sex: Male
  Weight: 75 kg

DRUGS (17)
  1. CENTRUM SILVER [Concomitant]
     Active Substance: VITAMINS
  2. VITAMIN C [Concomitant]
     Active Substance: ASCORBIC ACID
  3. FISH OIL [Concomitant]
     Active Substance: FISH OIL
  4. NOVOLOG [Concomitant]
     Active Substance: INSULIN ASPART
  5. ASPIRIN. [Concomitant]
     Active Substance: ASPIRIN
  6. OXYBUTYNIN [Concomitant]
     Active Substance: OXYBUTYNIN
  7. ALEVE [Suspect]
     Active Substance: NAPROXEN SODIUM
     Indication: PAIN
  8. ICAPS [Concomitant]
     Active Substance: MINERALS\VITAMINS
     Dosage: UNK
  9. LOSARTAN [Concomitant]
     Active Substance: LOSARTAN
  10. ALEVE [Suspect]
     Active Substance: NAPROXEN SODIUM
     Indication: HYPERTONIC BLADDER
     Dosage: 1 DF, PRN
     Route: 048
  11. ALEVE [Suspect]
     Active Substance: NAPROXEN SODIUM
     Indication: MICTURITION URGENCY
  12. OSTEO BI-FLEX [Concomitant]
     Active Substance: CHONDROITIN SULFATE A\GLUCOSAMINE
     Dosage: UNK
  13. LEVEMIR [Concomitant]
     Active Substance: INSULIN DETEMIR
  14. VITAMIN D [Concomitant]
     Active Substance: CHOLECALCIFEROL
  15. METFORMIN [Concomitant]
     Active Substance: METFORMIN HYDROCHLORIDE
  16. AMLODIPINE [Concomitant]
     Active Substance: AMLODIPINE BESYLATE
  17. HYDROCHLOROTHIAZIDE. [Concomitant]
     Active Substance: HYDROCHLOROTHIAZIDE

REACTIONS (1)
  - Intentional product misuse [None]

NARRATIVE: CASE EVENT DATE: 2013
